FAERS Safety Report 18891449 (Version 1)
Quarter: 2021Q1

REPORT INFORMATION
  Report Type: Report from Study
  Country: CA (occurrence: CA)
  Receive Date: 20210215
  Receipt Date: 20210215
  Transmission Date: 20210420
  Serious: Yes (Other)
  Sender: FDA-Public Use
  Company Number: CA-SAMSUNG BIOEPIS-SB-2021-03221

PATIENT
  Age: 27 Year
  Sex: Male

DRUGS (2)
  1. RENFLEXIS [Suspect]
     Active Substance: INFLIXIMAB-ABDA
     Indication: COLITIS ULCERATIVE
     Dosage: VIALS
     Route: 065
     Dates: start: 20200409
  2. MEZAVANT [Concomitant]
     Active Substance: MESALAMINE
     Indication: PRODUCT USED FOR UNKNOWN INDICATION
     Dosage: UNKNOWN, FOUR TABLETS ONCE DAILY
     Route: 065

REACTIONS (2)
  - Product use issue [Unknown]
  - Suspected COVID-19 [Unknown]
